FAERS Safety Report 5728488-4 (Version None)
Quarter: 2008Q2

REPORT INFORMATION
  Report Type: 
  Country: None (occurrence: None)
  Receive Date: 20080430
  Receipt Date: 20080104
  Transmission Date: 20081010
  Serious: No
  Sender: FDA-Public Use
  Company Number: 2008PV033906

PATIENT
  Age: 53 Year
  Sex: Female
  Weight: 94.8018 kg

DRUGS (4)
  1. SYMLIN [Suspect]
     Indication: TYPE 1 DIABETES MELLITUS
     Dosage: 120 MCG;PRN;SC;SC;15 MCG;SC
     Route: 058
     Dates: start: 20060201, end: 20060201
  2. SYMLIN [Suspect]
     Indication: TYPE 1 DIABETES MELLITUS
     Dosage: 120 MCG;PRN;SC;SC;15 MCG;SC
     Route: 058
     Dates: start: 20060201, end: 20060201
  3. SYMLIN [Suspect]
     Indication: TYPE 1 DIABETES MELLITUS
     Dosage: 120 MCG;PRN;SC;SC;15 MCG;SC
     Route: 058
     Dates: start: 20060201
  4. METFORMIN [Concomitant]

REACTIONS (1)
  - HYPOGLYCAEMIA [None]
